FAERS Safety Report 17956614 (Version 1)
Quarter: 2020Q2

REPORT INFORMATION
  Report Type: Spontaneous
  Country: US (occurrence: US)
  Receive Date: 20200627
  Receipt Date: 20200627
  Transmission Date: 20200714
  Serious: Yes (Life-Threatening)
  Sender: FDA-Public Use
  Company Number: None

PATIENT
  Age: 69 Year
  Sex: Male
  Weight: 73.35 kg

DRUGS (1)
  1. ARTNATURALS SCENT FREE HAND SANITIZER [Suspect]
     Active Substance: ALCOHOL
     Indication: INFECTION PROPHYLAXIS
     Route: 061
     Dates: start: 20200625, end: 20200625

REACTIONS (5)
  - Product leakage [None]
  - Product complaint [None]
  - Skin burning sensation [None]
  - Pruritus [None]
  - Product formulation issue [None]

NARRATIVE: CASE EVENT DATE: 20200625
